FAERS Safety Report 19847464 (Version 1)
Quarter: 2021Q3

REPORT INFORMATION
  Report Type: Spontaneous
  Country: US (occurrence: US)
  Receive Date: 20210917
  Receipt Date: 20210917
  Transmission Date: 20211014
  Serious: No
  Sender: FDA-Public Use
  Company Number: US-ASTRAZENECA-2021A711266

PATIENT
  Sex: Male
  Weight: 73.5 kg

DRUGS (5)
  1. BABY ASPIRIN [Concomitant]
     Active Substance: ASPIRIN
     Route: 065
  2. ATORVASTATIN [Concomitant]
     Active Substance: ATORVASTATIN
     Indication: BLOOD CHOLESTEROL
     Route: 065
     Dates: start: 202105
  3. BRILINTA [Suspect]
     Active Substance: TICAGRELOR
     Indication: ACUTE CARDIAC EVENT
     Route: 048
     Dates: start: 202105
  4. METOPROLOL SUCCINATE. [Concomitant]
     Active Substance: METOPROLOL SUCCINATE
     Indication: CARDIAC DISORDER
     Route: 048
     Dates: start: 202105
  5. BRILINTA [Suspect]
     Active Substance: TICAGRELOR
     Indication: STENT PLACEMENT
     Route: 048
     Dates: start: 202105

REACTIONS (3)
  - Dizziness [Not Recovered/Not Resolved]
  - Dizziness [Unknown]
  - Post-traumatic stress disorder [Unknown]
